FAERS Safety Report 23647911 (Version 1)
Quarter: 2024Q1

REPORT INFORMATION
  Report Type: Spontaneous
  Country: US (occurrence: US)
  Receive Date: 20240319
  Receipt Date: 20240319
  Transmission Date: 20240409
  Serious: No
  Sender: FDA-Public Use
  Company Number: US-SA-SAC20240318000202

PATIENT
  Sex: Female

DRUGS (1)
  1. AUBAGIO [Suspect]
     Active Substance: TERIFLUNOMIDE

REACTIONS (3)
  - Fatigue [Unknown]
  - Contusion [Unknown]
  - Condition aggravated [Unknown]
